FAERS Safety Report 19099252 (Version 1)
Quarter: 2021Q2

REPORT INFORMATION
  Report Type: Spontaneous
  Country: CN (occurrence: CN)
  Receive Date: 20210406
  Receipt Date: 20210406
  Transmission Date: 20210717
  Serious: Yes (Hospitalization, Other)
  Sender: FDA-Public Use
  Company Number: CN-009507513-2104CHN000216

PATIENT
  Age: 49 Year
  Sex: Male
  Weight: 70 kg

DRUGS (2)
  1. TIENAM [Suspect]
     Active Substance: CILASTATIN SODIUM\IMIPENEM
     Indication: INFECTION
     Dosage: 2 GRAM, Q8H ( ALSO REPORTED AS THREE TIMES A DAY)
     Route: 041
     Dates: start: 20210319, end: 20210322
  2. SODIUM CHLORIDE. [Concomitant]
     Active Substance: SODIUM CHLORIDE
     Indication: INFECTION
     Dosage: 250 MILLILITER, Q8H ( ALSO REPORTED AS THREE TIMES A DAY)
     Route: 041
     Dates: start: 20210319, end: 20210322

REACTIONS (3)
  - Papule [Recovering/Resolving]
  - Erythema multiforme [Recovering/Resolving]
  - Rash [Recovering/Resolving]

NARRATIVE: CASE EVENT DATE: 20210319
